FAERS Safety Report 15292802 (Version 1)
Quarter: 2018Q3

REPORT INFORMATION
  Report Type: Spontaneous
  Country: US (occurrence: US)
  Receive Date: 20180806
  Receipt Date: 20180806
  Transmission Date: 20181010
  Serious: Yes (Other)
  Sender: FDA-Public Use
  Company Number: None

PATIENT
  Age: 62 Year
  Sex: Female
  Weight: 67.95 kg

DRUGS (10)
  1. DUEXIS 800MG?26.6MG [Concomitant]
  2. TYLENOL 1000MG [Concomitant]
     Dates: start: 20180728, end: 20180728
  3. RITUXAN [Suspect]
     Active Substance: RITUXIMAB
     Indication: RHEUMATOID ARTHRITIS
     Dosage: ?          OTHER FREQUENCY:2 DOSES Q 6 MONTHS;?
     Route: 041
     Dates: start: 20180113, end: 20180728
  4. PREMARIN .625MG [Concomitant]
  5. PEPCID 20MG [Concomitant]
     Dates: start: 20180728, end: 20180728
  6. SOLUMEDROL 125MG [Concomitant]
     Dates: start: 20180728, end: 20180728
  7. MONTELUKAST [Concomitant]
     Active Substance: MONTELUKAST SODIUM
  8. BENADRYL 50MG [Concomitant]
     Dates: start: 20180728, end: 20180728
  9. METOPROLOL 100MG [Concomitant]
     Active Substance: METOPROLOL
  10. PREDNISONE 5MG [Concomitant]
     Active Substance: PREDNISONE

REACTIONS (6)
  - Flushing [None]
  - Cough [None]
  - Blood pressure increased [None]
  - Urticaria [None]
  - Heart rate increased [None]
  - Throat irritation [None]

NARRATIVE: CASE EVENT DATE: 20180728
